FAERS Safety Report 10651712 (Version 4)
Quarter: 2015Q1

REPORT INFORMATION
  Report Type: Spontaneous
  Country: SA (occurrence: SA)
  Receive Date: 20141215
  Receipt Date: 20150304
  Transmission Date: 20150720
  Serious: Yes (Life-Threatening)
  Sender: FDA-Public Use
  Company Number: SA-PFIZER INC-2014338123

PATIENT
  Age: 66 Year
  Sex: Male
  Weight: 76 kg

DRUGS (2)
  1. ZYVOX [Suspect]
     Active Substance: LINEZOLID
     Indication: INFECTED FISTULA
     Dosage: UNK, 2X/DAY
     Route: 048
     Dates: start: 20141125, end: 20141208
  2. FORTUM [Concomitant]
     Active Substance: CEFTAZIDIME
     Indication: INFECTED FISTULA
     Dosage: 1 G, DAILY
     Route: 042
     Dates: end: 20141208

REACTIONS (2)
  - Haemorrhage [Not Recovered/Not Resolved]
  - Platelet count decreased [Unknown]

NARRATIVE: CASE EVENT DATE: 20141208
